FAERS Safety Report 18105649 (Version 2)
Quarter: 2020Q3

REPORT INFORMATION
  Report Type: Spontaneous
  Country: US (occurrence: US)
  Receive Date: 20200803
  Receipt Date: 20200817
  Transmission Date: 20201103
  Serious: Yes (Death)
  Sender: FDA-Public Use
  Company Number: US-ACTELION-A-NJ2019-197753

PATIENT
  Age: 77 Year
  Sex: Female
  Weight: 70.75 kg

DRUGS (4)
  1. COUMADIN [Concomitant]
     Active Substance: WARFARIN SODIUM
  2. AMBRISENTAN [Concomitant]
     Active Substance: AMBRISENTAN
  3. OXYGEN. [Concomitant]
     Active Substance: OXYGEN
     Dosage: 3 L
  4. UPTRAVI [Suspect]
     Active Substance: SELEXIPAG
     Indication: PULMONARY ARTERIAL HYPERTENSION
     Dosage: 200 MCG, BID
     Route: 048
     Dates: start: 20191026

REACTIONS (7)
  - Death [Fatal]
  - Dyspnoea [Unknown]
  - Peripheral swelling [Unknown]
  - Chest discomfort [Unknown]
  - Pain in extremity [Unknown]
  - Hypersensitivity [Unknown]
  - Pruritus [Unknown]

NARRATIVE: CASE EVENT DATE: 201910
